FAERS Safety Report 9340918 (Version 1)
Quarter: 2013Q2

REPORT INFORMATION
  Report Type: Spontaneous
  Country: LK (occurrence: None)
  Receive Date: 20130524
  Receipt Date: 20130524
  Transmission Date: 20140414
  Serious: Yes (Other)
  Sender: FDA-Public Use
  Company Number: 2013035874

PATIENT
  Sex: 0

DRUGS (1)
  1. SANDOGLOBULIN [Suspect]
     Indication: GUILLAIN-BARRE SYNDROME
     Dosage: 0.4G/KG/DAY OVER 5 DAYS (TOTAL OF NEARLY 125 G ?ON 1ST OCCASION), 2ND COURSE (TOTAL OF APPROX. 125 G OVER 5 DAYS)?INTRAVENOUS (NOT OTHERWISE SPECIFIED)
     Route: 042

REACTIONS (5)
  - Guillain-Barre syndrome [None]
  - Disease recurrence [None]
  - Demyelinating polyneuropathy [None]
  - Respiratory disorder [None]
  - Muscular weakness [None]
